FAERS Safety Report 25756368 (Version 1)
Quarter: 2025Q3

REPORT INFORMATION
  Report Type: Spontaneous
  Country: KR (occurrence: KR)
  Receive Date: 20250903
  Receipt Date: 20250903
  Transmission Date: 20251021
  Serious: Yes (Other)
  Sender: MERCK SHARP & DOHME LLC
  Company Number: KR-009507513-2325763

PATIENT
  Age: 55 Year
  Sex: Female

DRUGS (3)
  1. PEMBROLIZUMAB [Suspect]
     Active Substance: PEMBROLIZUMAB
     Route: 042
     Dates: start: 20240716, end: 20240716
  2. DOXORUBICIN HYDROCHLORIDE [Suspect]
     Active Substance: DOXORUBICIN HYDROCHLORIDE
     Route: 042
     Dates: start: 20240716, end: 20240716
  3. CYCLOPHOSPHAMIDE [Suspect]
     Active Substance: CYCLOPHOSPHAMIDE
     Route: 042
     Dates: start: 20240716, end: 20240716

REACTIONS (1)
  - Leukopenia [Recovering/Resolving]

NARRATIVE: CASE EVENT DATE: 20240730
